FAERS Safety Report 8845721 (Version 1)
Quarter: 2012Q4

REPORT INFORMATION
  Report Type: 
  Country: US (occurrence: US)
  Receive Date: 20121017
  Receipt Date: 20121017
  Transmission Date: 20130627
  Serious: No
  Sender: FDA-Public Use
  Company Number: US-009507513-1210USA005383

PATIENT

DRUGS (3)
  1. VICTRELIS [Suspect]
     Dosage: 4 DF, q8h
     Route: 048
     Dates: start: 201209
  2. PEGASYS [Suspect]
     Dosage: UNK
     Dates: start: 201209
  3. REBETOL [Suspect]
     Dosage: UNK
     Dates: start: 201209

REACTIONS (2)
  - Inappropriate schedule of drug administration [Unknown]
  - No adverse event [Unknown]
